FAERS Safety Report 9530695 (Version 1)
Quarter: 2013Q3

REPORT INFORMATION
  Report Type: Other
  Country: JP (occurrence: JP)
  Receive Date: 20130918
  Receipt Date: 20130918
  Transmission Date: 20140515
  Serious: Yes (Hospitalization)
  Sender: FDA-Public Use
  Company Number: JP-BRISTOL-MYERS SQUIBB COMPANY-19415330

PATIENT
  Age: 5 Decade
  Sex: Female

DRUGS (2)
  1. CARBOPLATIN INJECTION [Suspect]
     Indication: UTERINE CANCER
     Dosage: 700 MG: INITIAL DOSE
  2. PACLITAXEL [Suspect]
     Indication: UTERINE CANCER

REACTIONS (1)
  - Posterior reversible encephalopathy syndrome [Unknown]
